FAERS Safety Report 5977933-8 (Version None)
Quarter: 2008Q4

REPORT INFORMATION
  Report Type: 
  Country: None (occurrence: None)
  Receive Date: 20081203
  Receipt Date: 20081126
  Transmission Date: 20090506
  Serious: Yes (Hospitalization, Other)
  Sender: FDA-Public Use
  Company Number: AU-ROXANE LABORATORIES, INC.-2008-RO-00302RO

PATIENT
  Age: 60 Year
  Sex: Male

DRUGS (7)
  1. LITHIUM CARBONATE [Suspect]
     Indication: MAJOR DEPRESSION
  2. LITHIUM CARBONATE [Suspect]
     Dosage: 650MG
  3. ADJUNCTIVE MEDICATION [Suspect]
     Indication: MAJOR DEPRESSION
  4. ADJUNCTIVE MEDICATION [Suspect]
  5. PRINIVIL [Suspect]
     Indication: HYPERTENSION
     Dates: start: 20000101
  6. ANTIPSYCHOTIC MEDICATION [Suspect]
     Indication: ELEVATED MOOD
  7. SALINE PERFUSION [Concomitant]
     Indication: THERAPEUTIC AGENT TOXICITY

REACTIONS (12)
  - ANAEMIA [None]
  - ANTIPSYCHOTIC DRUG LEVEL INCREASED [None]
  - BLOOD CREATININE INCREASED [None]
  - DEPRESSIVE SYMPTOM [None]
  - ELEVATED MOOD [None]
  - FALSE NEGATIVE LABORATORY RESULT [None]
  - HEPATIC ENZYME ABNORMAL [None]
  - HYPERTENSION [None]
  - MANIA [None]
  - NEUTROPENIA [None]
  - STRESS [None]
  - THERAPEUTIC AGENT TOXICITY [None]
